FAERS Safety Report 10510884 (Version 2)
Quarter: 2014Q4

REPORT INFORMATION
  Report Type: Spontaneous
  Country: US (occurrence: US)
  Receive Date: 20141010
  Receipt Date: 20141125
  Transmission Date: 20150528
  Serious: Yes (Death)
  Sender: FDA-Public Use
  Company Number: US-INCYTE CORPORATION-2014IN002988

PATIENT
  Sex: Male
  Weight: 49.43 kg

DRUGS (1)
  1. JAKAFI [Suspect]
     Active Substance: RUXOLITINIB
     Indication: MYELOFIBROSIS
     Dosage: 20 MG, BID
     Route: 048
     Dates: start: 20140604, end: 2014

REACTIONS (4)
  - Pneumonia [Fatal]
  - Cardiac failure chronic [Fatal]
  - Sepsis [Fatal]
  - Pulmonary fibrosis [Fatal]
